FAERS Safety Report 5462983-0 (Version None)
Quarter: 2007Q3

REPORT INFORMATION
  Report Type: 
  Country: None (occurrence: None)
  Receive Date: 20070918
  Receipt Date: 20070918
  Transmission Date: 20080115
  Serious: Yes (Hospitalization)
  Sender: FDA-Public Use
  Company Number: None

PATIENT
  Sex: Male
  Weight: 108 kg

DRUGS (19)
  1. CETUXIMAB 400MG/M2, 250 MG/M2; BRISTOL-MYERS-SQUIBB [Suspect]
     Indication: HEPATIC NEOPLASM MALIGNANT
     Dosage: 400MG/M2, 250 MG/M2 8/10/07,8/17/07 IV
     Route: 042
     Dates: start: 20070810
  2. CETUXIMAB 400MG/M2, 250 MG/M2; BRISTOL-MYERS-SQUIBB [Suspect]
     Indication: HEPATIC NEOPLASM MALIGNANT
     Dosage: 400MG/M2, 250 MG/M2 8/10/07,8/17/07 IV
     Route: 042
     Dates: start: 20070817
  3. OXALIPLATIN [Suspect]
     Indication: HEPATIC NEOPLASM MALIGNANT
     Dosage: 130 MG/M2 8/10/07 IV
     Route: 042
     Dates: start: 20070810
  4. ACIPHEX [Concomitant]
  5. IMODIUM [Concomitant]
  6. LOPRESSOR [Concomitant]
  7. PHENERGAN HCL [Concomitant]
  8. AVODART [Concomitant]
  9. LISINOPRIL AND HYDROCHLOROTHIAZIDE [Concomitant]
  10. MEGACE [Concomitant]
  11. QUESTRAN [Concomitant]
  12. IRON [Concomitant]
  13. FUROSEMIDE [Concomitant]
  14. OPIUM TINCTURE [Concomitant]
  15. ZOFRAN [Concomitant]
  16. PROCHLORPERAZINE [Concomitant]
  17. SPIRONOLACTONE [Concomitant]
  18. THORAZINE [Concomitant]
  19. CAPECITABINE [Concomitant]

REACTIONS (7)
  - DEHYDRATION [None]
  - DIARRHOEA [None]
  - FATIGUE [None]
  - HYPERKALAEMIA [None]
  - MUCOSAL INFLAMMATION [None]
  - ORAL PAIN [None]
  - PHARYNGOLARYNGEAL PAIN [None]
